FAERS Safety Report 17765847 (Version 1)
Quarter: 2020Q2

REPORT INFORMATION
  Report Type: Spontaneous
  Country: US (occurrence: US)
  Receive Date: 20200511
  Receipt Date: 20200511
  Transmission Date: 20200714
  Serious: No
  Sender: FDA-Public Use
  Company Number: None

PATIENT
  Age: 50 Year
  Sex: Female

DRUGS (1)
  1. XALKORI [Suspect]
     Active Substance: CRIZOTINIB
     Indication: LUNG CARCINOMA CELL TYPE UNSPECIFIED STAGE 0
     Route: 048
     Dates: start: 20200424, end: 20200507

REACTIONS (12)
  - Vomiting [None]
  - Cough [None]
  - Pyrexia [None]
  - Decreased appetite [None]
  - Nausea [None]
  - Dyspnoea [None]
  - Diarrhoea [None]
  - Chills [None]
  - Vitreous floaters [None]
  - Dizziness [None]
  - Chromaturia [None]
  - Pruritus [None]

NARRATIVE: CASE EVENT DATE: 20200426
